FAERS Safety Report 17198830 (Version 3)
Quarter: 2023Q1

REPORT INFORMATION
  Report Type: Other
  Country: US (occurrence: None)
  Receive Date: 20191225
  Receipt Date: 20230206
  Transmission Date: 20230417
  Serious: Yes (Other)
  Sender: FDA-Public Use
  Company Number: US-ROCHE-2507609

PATIENT
  Age: 74 Year
  Sex: Female
  Weight: 113.50 kg

DRUGS (13)
  1. OCREVUS [Suspect]
     Active Substance: OCRELIZUMAB
     Indication: Primary progressive multiple sclerosis
     Dosage: ONGOING:NO
     Route: 042
     Dates: start: 20181220
  2. OCREVUS [Suspect]
     Active Substance: OCRELIZUMAB
     Route: 042
     Dates: start: 2019
  3. OCREVUS [Suspect]
     Active Substance: OCRELIZUMAB
     Dosage: STRENGTH: 300 MG/10ML
     Route: 042
  4. AMOXICILLIN [Concomitant]
     Active Substance: AMOXICILLIN
     Indication: Urinary tract infection
     Dosage: 825/125MG
     Route: 048
  5. CYMBALTA [Concomitant]
     Active Substance: DULOXETINE HYDROCHLORIDE
  6. BACLOFEN [Concomitant]
     Active Substance: BACLOFEN
  7. LISINOPRIL [Concomitant]
     Active Substance: LISINOPRIL
  8. ELIQUIS [Concomitant]
     Active Substance: APIXABAN
  9. PROTONIX [Concomitant]
     Active Substance: PANTOPRAZOLE SODIUM
  10. GABAPENTIN [Concomitant]
     Active Substance: GABAPENTIN
  11. TRILEPTAL [Concomitant]
     Active Substance: OXCARBAZEPINE
  12. CRESTOR [Concomitant]
     Active Substance: ROSUVASTATIN CALCIUM
  13. INDAPAMIDE [Concomitant]
     Active Substance: INDAPAMIDE

REACTIONS (4)
  - Urinary tract infection [Recovered/Resolved]
  - Limb injury [Not Recovered/Not Resolved]
  - Gait disturbance [Not Recovered/Not Resolved]
  - Tremor [Not Recovered/Not Resolved]

NARRATIVE: CASE EVENT DATE: 20230113
